FAERS Safety Report 9198792 (Version 1)
Quarter: 2013Q1

REPORT INFORMATION
  Report Type: Spontaneous
  Country: US (occurrence: None)
  Receive Date: 20130327
  Receipt Date: 20130327
  Transmission Date: 20140127
  Serious: Yes (Other)
  Sender: FDA-Public Use
  Company Number: None

PATIENT
  Age: 41 Year
  Sex: Male
  Weight: 77.3 kg

DRUGS (1)
  1. ESCITALOPRAM 10 MG [Suspect]
     Indication: DEPRESSION
     Route: 048
     Dates: start: 20120801, end: 20121201

REACTIONS (4)
  - Weight decreased [None]
  - Ageusia [None]
  - Erectile dysfunction [None]
  - Product substitution issue [None]
